FAERS Safety Report 9164100 (Version 1)
Quarter: 2013Q1

REPORT INFORMATION
  Report Type: Spontaneous
  Country: US (occurrence: US)
  Receive Date: 20130315
  Receipt Date: 20130315
  Transmission Date: 20140127
  Serious: No
  Sender: FDA-Public Use
  Company Number: US-009507513-1303USA005909

PATIENT
  Sex: Female

DRUGS (10)
  1. BOCEPREVIR [Suspect]
     Indication: CHRONIC HEPATITIS C
     Dosage: 4 DF, TID
     Dates: start: 20120329
  2. RIBAVIRIN [Suspect]
     Indication: CHRONIC HEPATITIS C
     Dosage: 1000 MG DAILY IN DIVIDED DOSES
     Route: 048
     Dates: start: 20120301
  3. RIBAVIRIN [Suspect]
     Dosage: 600 MG, QD
     Route: 048
  4. PEGINTERFERON ALFA-2A [Suspect]
     Indication: CHRONIC HEPATITIS C
     Dosage: 180 MICROGRAM, QW
     Route: 058
     Dates: start: 20120301
  5. PEGINTERFERON ALFA-2A [Suspect]
     Dosage: 135 MICROGRAM, QW
     Route: 058
  6. ZANTAC [Concomitant]
     Indication: GASTRITIS
  7. TRAMADOL HYDROCHLORIDE [Concomitant]
  8. HYDROCODONE BITARTRATE [Concomitant]
  9. LISINOPRIL [Concomitant]
  10. METFORMIN HYDROCHLORIDE [Concomitant]

REACTIONS (7)
  - Injection site bruising [Unknown]
  - Dry mouth [Unknown]
  - Product odour abnormal [Unknown]
  - Irritability [Unknown]
  - Product taste abnormal [Unknown]
  - Oropharyngeal pain [Unknown]
  - Pruritus [Unknown]
